FAERS Safety Report 9536156 (Version 1)
Quarter: 2013Q3

REPORT INFORMATION
  Report Type: Spontaneous
  Country: US (occurrence: None)
  Receive Date: 20130917
  Receipt Date: 20130917
  Transmission Date: 20140515
  Serious: No
  Sender: FDA-Public Use
  Company Number: None

PATIENT
  Age: 72 Year
  Sex: Female
  Weight: 58.97 kg

DRUGS (3)
  1. ATORVASTATIN [Suspect]
     Indication: BLOOD CHOLESTEROL
     Dosage: 10 MG ONCE A DAY PILL ONCE
  2. VITAMINS [Concomitant]
  3. KOPAX PRO MULTIPLE VIT D COMPLEX [Concomitant]

REACTIONS (4)
  - Muscle spasms [None]
  - Muscle spasms [None]
  - Back pain [None]
  - Amnesia [None]
